FAERS Safety Report 13072201 (Version 5)
Quarter: 2019Q2

REPORT INFORMATION
  Report Type: Report from Study
  Country: JP (occurrence: JP)
  Receive Date: 20161229
  Receipt Date: 20190502
  Transmission Date: 20190711
  Serious: Yes (Hospitalization, Other)
  Sender: FDA-Public Use
  Company Number: JP-CELGENEUS-JPN-2016125278

PATIENT
  Age: 70 Year
  Sex: Female
  Weight: 51.8 kg

DRUGS (17)
  1. CC-10004 [Suspect]
     Active Substance: APREMILAST
     Indication: BEHCET^S SYNDROME
     Route: 048
     Dates: start: 20160908, end: 20161128
  2. AMBROXOL HCL [Concomitant]
     Active Substance: AMBROXOL HYDROCHLORIDE
     Indication: ASTHMA
     Dosage: 45 MILLIGRAM
     Route: 048
     Dates: start: 20151208
  3. ACETAMINOPHEN. [Concomitant]
     Active Substance: ACETAMINOPHEN
     Dosage: 1500 MILLIGRAM
     Route: 048
     Dates: start: 20160725
  4. KETOPROFEN. [Concomitant]
     Active Substance: KETOPROFEN
     Indication: BACK PAIN
     Dosage: 20 MILLIGRAM
     Route: 062
     Dates: start: 20140306
  5. ACETAMINOPHEN. [Concomitant]
     Active Substance: ACETAMINOPHEN
     Indication: BEHCET^S SYNDROME
     Dosage: 1500 MILLIGRAM
     Route: 048
     Dates: start: 20160623, end: 20160625
  6. FLUNITRAZEPAM [Concomitant]
     Active Substance: FLUNITRAZEPAM
     Indication: INSOMNIA
     Dosage: 2 MILLIGRAM
     Route: 048
     Dates: start: 20140118
  7. ACETAMINOPHEN. [Concomitant]
     Active Substance: ACETAMINOPHEN
     Indication: PYREXIA
     Dosage: 1500 MILLIGRAM
     Route: 048
     Dates: start: 20160714, end: 20160715
  8. SODIUM GUALENATE HYDRATE [Concomitant]
     Active Substance: SODIUM GUALENATE MONOHYDRATE
     Indication: BEHCET^S SYNDROME
     Dosage: 1 APPLICATION
     Route: 061
     Dates: start: 20160714
  9. FELBINAC [Concomitant]
     Active Substance: FELBINAC
     Indication: BEHCET^S SYNDROME
     Dosage: 1 APPLICATION
     Route: 062
     Dates: start: 20160808
  10. PREDNISOLONE. [Concomitant]
     Active Substance: PREDNISOLONE
     Indication: BEHCET^S SYNDROME
     Dosage: 5 MILLIGRAM
     Route: 048
     Dates: start: 20161129, end: 20161205
  11. ADOAIR [Concomitant]
     Active Substance: FLUTICASONE PROPIONATE\SALMETEROL XINAFOATE
     Indication: ASTHMA
     Dosage: 200 MICROGRAM
     Route: 055
     Dates: start: 20151112
  12. COLCHICINE. [Concomitant]
     Active Substance: COLCHICINE
     Indication: BEHCET^S SYNDROME
     Dosage: 0.5 MILLIGRAM
     Route: 048
     Dates: start: 20161128
  13. MAGNESIUM OXIDE. [Concomitant]
     Active Substance: MAGNESIUM OXIDE
     Indication: CONSTIPATION
     Dosage: 660 MILLIGRAM
     Route: 048
     Dates: start: 20140114
  14. OLOPATADINE HYDROCHLORIDE. [Concomitant]
     Active Substance: OLOPATADINE HYDROCHLORIDE
     Indication: EYE PRURITUS
     Dosage: 1 APPLICATION
     Route: 047
     Dates: start: 20160725
  15. FEXOFENADINE HCL [Concomitant]
     Active Substance: FEXOFENADINE HYDROCHLORIDE
     Indication: RHINITIS ALLERGIC
     Dosage: 120 MILLIGRAM
     Route: 048
     Dates: start: 20150306
  16. ACETAMINOPHEN. [Concomitant]
     Active Substance: ACETAMINOPHEN
     Dosage: 1500 MILLIGRAM
     Route: 048
     Dates: start: 20160716, end: 20160724
  17. PLACEBO [Suspect]
     Active Substance: UNSPECIFIED INGREDIENT
     Indication: BEHCET^S SYNDROME
     Dosage: 60 MILLIGRAM
     Route: 048
     Dates: start: 20160616, end: 201609

REACTIONS (2)
  - Endometrial cancer [Recovered/Resolved]
  - Behcet^s syndrome [Unknown]

NARRATIVE: CASE EVENT DATE: 20161215
